FAERS Safety Report 4928530-4 (Version None)
Quarter: 2006Q1

REPORT INFORMATION
  Report Type: 
  Country: None (occurrence: None)
  Receive Date: 20060223
  Receipt Date: 20060130
  Transmission Date: 20060701
  Serious: Yes (Other)
  Sender: FDA-Public Use
  Company Number: 200510576BYL

PATIENT
  Age: 82 Year
  Sex: Female

DRUGS (6)
  1. ADALAT [Suspect]
     Indication: HYPERTENSION
     Dosage: 40 MG, QD, ORAL
     Route: 048
     Dates: start: 20051013, end: 20051101
  2. ADALAT [Suspect]
     Indication: HYPERTENSION
     Dosage: 20 MG, QD, ORAL
     Route: 048
     Dates: start: 20030724, end: 20051012
  3. LASIX [Concomitant]
  4. CAPTOPRIL-R [Concomitant]
  5. ALDACTONE [Concomitant]
  6. NORVASC [Concomitant]

REACTIONS (2)
  - CHOLESTASIS [None]
  - CHRONIC HEPATITIS [None]
